FAERS Safety Report 9026201 (Version 2)
Quarter: 2013Q1

REPORT INFORMATION
  Report Type: Spontaneous
  Country: US (occurrence: None)
  Receive Date: 20121207
  Receipt Date: 20121221
  Transmission Date: 20140127
  Serious: Yes (Hospitalization)
  Sender: FDA-Public Use
  Company Number: 2012SP004277

PATIENT
  Age: 51 Year
  Sex: Male
  Weight: 82.1 kg

DRUGS (14)
  1. OXALIPLATIN [Suspect]
     Indication: ADENOCARCINOMA PANCREAS
     Route: 042
     Dates: start: 20121115, end: 20121115
  2. FLUOROURACIL [Suspect]
     Indication: ADENOCARCINOMA PANCREAS
     Route: 042
     Dates: start: 20121115, end: 20121117
  3. IRINOTECAN HCL [Suspect]
     Indication: ADENOCARCINOMA PANCREAS
     Route: 042
     Dates: start: 20121115, end: 20121115
  4. FOLINIC ACID [Suspect]
     Indication: PANCREATIC CARCINOMA
     Route: 042
     Dates: start: 20121115, end: 20121115
  5. WARFARIN SODIUM [Concomitant]
  6. CYCLOBENZAPRINE [Concomitant]
  7. METFORMIN [Concomitant]
  8. MACROGOL [Concomitant]
  9. NICOTINE [Concomitant]
  10. OXYCODONE [Concomitant]
  11. PROCHLORPERAZINE [Concomitant]
  12. DOCUSATE SODIUM [Concomitant]
  13. INSULIN [Concomitant]
  14. OXYCOCET [Concomitant]

REACTIONS (3)
  - Diarrhoea [None]
  - Abdominal pain [None]
  - Colitis [None]
